FAERS Safety Report 17186281 (Version 1)
Quarter: 2019Q4

REPORT INFORMATION
  Report Type: Report from Study
  Country: CA (occurrence: CA)
  Receive Date: 20191220
  Receipt Date: 20191220
  Transmission Date: 20200122
  Serious: Yes (Other)
  Sender: FDA-Public Use
  Company Number: CA-JNJFOC-20191217073

PATIENT
  Age: 40 Year
  Sex: Female

DRUGS (1)
  1. STELARA [Suspect]
     Active Substance: USTEKINUMAB
     Indication: CROHN^S DISEASE
     Dosage: 57 DOSES
     Route: 058
     Dates: start: 20160225

REACTIONS (2)
  - Myalgia [Unknown]
  - Intestinal resection [Unknown]

NARRATIVE: CASE EVENT DATE: 20191125
